FAERS Safety Report 4603968-3 (Version None)
Quarter: 2005Q1

REPORT INFORMATION
  Report Type: 
  Country: None (occurrence: None)
  Receive Date: 20050308
  Receipt Date: 20050308
  Transmission Date: 20050727
  Serious: Yes (Hospitalization)
  Sender: FDA-Public Use
  Company Number: None

PATIENT
  Age: 71 Year

DRUGS (1)
  1. CARBAMAZEPINE [Suspect]

REACTIONS (3)
  - ASTHENIA [None]
  - FALL [None]
  - OVERDOSE [None]
